FAERS Safety Report 9694493 (Version 1)
Quarter: 2013Q4

REPORT INFORMATION
  Report Type: Spontaneous
  Country: US (occurrence: US)
  Receive Date: 20131118
  Receipt Date: 20131118
  Transmission Date: 20140711
  Serious: No
  Sender: FDA-Public Use
  Company Number: US-009507513-1310USA015056

PATIENT
  Sex: Female

DRUGS (1)
  1. DULERA [Suspect]
     Indication: BRONCHITIS CHRONIC
     Dosage: UNK
     Dates: start: 201304, end: 20131007

REACTIONS (1)
  - Atrial fibrillation [Unknown]
